FAERS Safety Report 4861884-6 (Version None)
Quarter: 2005Q4

REPORT INFORMATION
  Report Type: 
  Country: None (occurrence: None)
  Receive Date: 20051129
  Receipt Date: 20050802
  Transmission Date: 20060501
  Serious: No
  Sender: FDA-Public Use
  Company Number: WAES 0508USA00350

PATIENT
  Age: 65 Year
  Sex: Male

DRUGS (1)
  1. ZETIA [Suspect]
     Dosage: PO
     Route: 048

REACTIONS (2)
  - MYALGIA [None]
  - TETANY [None]
